FAERS Safety Report 9462657 (Version 2)
Quarter: 2013Q3

REPORT INFORMATION
  Report Type: Spontaneous
  Country: US (occurrence: US)
  Receive Date: 20130816
  Receipt Date: 20130906
  Transmission Date: 20140515
  Serious: Yes (Other)
  Sender: FDA-Public Use
  Company Number: US-ELI_LILLY_AND_COMPANY-US201308002456

PATIENT
  Age: 50 Year
  Sex: Male

DRUGS (16)
  1. INSULIN HUMAN [Suspect]
     Indication: DIABETES MELLITUS
     Dosage: 150 U, TID
     Route: 058
     Dates: start: 20121201, end: 201304
  2. INSULIN HUMAN [Suspect]
     Dosage: 150 U, TID
     Dates: start: 201307, end: 20130802
  3. TENORMIN [Concomitant]
  4. TRICOR                             /00090101/ [Concomitant]
  5. HYDROCHLOROTHIAZIDE [Concomitant]
  6. NORVASC [Concomitant]
  7. HYZAAR [Concomitant]
  8. FLONASE [Concomitant]
  9. LIPITOR [Concomitant]
  10. WELLBUTRIN [Concomitant]
  11. CONCERTA [Concomitant]
  12. FLAXSEED OIL [Concomitant]
  13. GEODON                             /01487002/ [Concomitant]
  14. KLONOPIN [Concomitant]
  15. SONATA                             /01454001/ [Concomitant]
  16. FISH OIL [Concomitant]

REACTIONS (4)
  - Hypersensitivity [Recovered/Resolved]
  - Weight increased [Recovered/Resolved]
  - Swelling [Recovered/Resolved]
  - Weight decreased [Recovered/Resolved]
